FAERS Safety Report 7388221-X (Version None)
Quarter: 2011Q2

REPORT INFORMATION
  Report Type: 
  Country: None (occurrence: None)
  Receive Date: 20110401
  Receipt Date: 20110322
  Transmission Date: 20111010
  Serious: Yes (Other)
  Sender: FDA-Public Use
  Company Number: US-EISAI INC-E3810-04574-SPO-US

PATIENT
  Sex: Female

DRUGS (1)
  1. ACIPHEX [Suspect]
     Route: 048

REACTIONS (2)
  - PLATELET COUNT DECREASED [None]
  - ATRIAL FIBRILLATION [None]
